FAERS Safety Report 8616468-0 (Version None)
Quarter: 2012Q3

REPORT INFORMATION
  Report Type: 
  Country: None (occurrence: None)
  Receive Date: 20120823
  Receipt Date: 20120816
  Transmission Date: 20120928
  Serious: Yes (Other)
  Sender: FDA-Public Use
  Company Number: CA-009507513-2012SP015287

PATIENT

DRUGS (5)
  1. RIBAVIRIN [Suspect]
     Indication: HEPATITIS C
     Dosage: 1200 MG, QD
     Route: 048
     Dates: start: 20111214
  2. VICTRELIS [Suspect]
     Indication: HEPATITIS C
     Dosage: 800 MG, Q8H
     Dates: start: 20120105
  3. EPREX [Concomitant]
     Indication: ANAEMIA
     Dosage: 40000 IU, QW
     Route: 058
     Dates: start: 20120314
  4. PEGASYS [Suspect]
     Indication: HEPATITIS C
     Dosage: 180 ?G, UNK
     Route: 058
     Dates: start: 20111214
  5. VALIUM [Concomitant]
     Dosage: UNK

REACTIONS (10)
  - DEPRESSION [None]
  - ANGER [None]
  - NAUSEA [None]
  - VOMITING [None]
  - HYPERHIDROSIS [None]
  - BLINDNESS [None]
  - DIARRHOEA [None]
  - ANAEMIA [None]
  - DEAFNESS [None]
  - MIGRAINE [None]
